FAERS Safety Report 5266604-1 (Version None)
Quarter: 2007Q1

REPORT INFORMATION
  Report Type: 
  Country: None (occurrence: None)
  Receive Date: 20070315
  Receipt Date: 20070307
  Transmission Date: 20070707
  Serious: Yes (Other)
  Sender: FDA-Public Use
  Company Number: US-PFIZER INC-2007017991

PATIENT
  Sex: Female

DRUGS (10)
  1. XALATAN [Suspect]
     Indication: GLAUCOMA
  2. SUNITINIB MALATE [Concomitant]
  3. OXYCONTIN [Concomitant]
  4. MORPHINE [Concomitant]
  5. CLONAZEPAM [Concomitant]
  6. PREDNISOLONE [Concomitant]
  7. LEVOTHYROXINE SODIUM [Concomitant]
  8. OMEPRAZOLE [Concomitant]
  9. ESTROGENS [Concomitant]
  10. FAMVIR [Concomitant]

REACTIONS (2)
  - EYE IRRITATION [None]
  - RENAL CELL CARCINOMA STAGE UNSPECIFIED [None]
